FAERS Safety Report 8086726-X (Version None)
Quarter: 2012Q1

REPORT INFORMATION
  Report Type: 
  Country: None (occurrence: None)
  Receive Date: 20120128
  Receipt Date: 20110613
  Transmission Date: 20120608
  Serious: No
  Sender: FDA-Public Use
  Company Number: US-ABBOTT-11P-163-0731884-00

PATIENT
  Age: 40 Year
  Sex: Female

DRUGS (18)
  1. ZYRTEC [Concomitant]
     Indication: HYPERSENSITIVITY
     Dosage: AT BEDTIME
  2. AMITIZA [Concomitant]
     Indication: CONSTIPATION
  3. HYDROCODONE BITARTRATE [Concomitant]
     Indication: ARTHRALGIA
  4. HYDROCODONE BITARTRATE [Concomitant]
     Indication: BACK PAIN
  5. FISH OIL [Concomitant]
     Indication: BLOOD CHOLESTEROL
  6. CLARITIN [Concomitant]
     Indication: HYPERSENSITIVITY
     Dosage: 2 IN EACH NOSTRIL DAILY
     Route: 045
  7. TRICOR [Concomitant]
     Indication: BLOOD CHOLESTEROL
  8. CYMBALTA [Concomitant]
     Indication: POST-TRAUMATIC STRESS DISORDER
  9. BUSPAR [Concomitant]
     Indication: POST-TRAUMATIC STRESS DISORDER
  10. ZYRTEC [Concomitant]
     Indication: PAIN
  11. NAPROSYN [Concomitant]
     Indication: PAIN
     Dosage: 500MG BID AS NEEDED
  12. HUMIRA [Suspect]
     Indication: PSORIATIC ARTHROPATHY
     Dates: start: 20110501
  13. FLEXERIL [Concomitant]
     Indication: MUSCLE SPASMS
     Dosage: AT BEDTIME
  14. ADDERALL 5 [Concomitant]
     Indication: ATTENTION DEFICIT/HYPERACTIVITY DISORDER
  15. FLUOCINONIDE [Concomitant]
     Indication: PSORIASIS
  16. KLONOPIN [Concomitant]
     Indication: POST-TRAUMATIC STRESS DISORDER
  17. HYDROCHLOROTHIAZIDE [Concomitant]
     Indication: DIURETIC THERAPY
  18. SINGULAIR [Concomitant]
     Indication: HYPERSENSITIVITY

REACTIONS (2)
  - VAGINAL DISCHARGE [None]
  - PAIN IN EXTREMITY [None]
